FAERS Safety Report 11158248 (Version 1)
Quarter: 2015Q2

REPORT INFORMATION
  Report Type: Spontaneous
  Country: TR (occurrence: TR)
  Receive Date: 20150603
  Receipt Date: 20150603
  Transmission Date: 20150821
  Serious: Yes (Other)
  Sender: FDA-Public Use
  Company Number: TR-AMGEN-TURSP2015053269

PATIENT
  Sex: Female

DRUGS (2)
  1. ENBREL [Suspect]
     Active Substance: ETANERCEPT
     Dosage: 50 MG, WEEKLY
     Dates: start: 201407, end: 201502
  2. ENBREL [Suspect]
     Active Substance: ETANERCEPT
     Indication: EXPOSURE VIA FATHER
     Dosage: UNK
     Dates: start: 20140424, end: 201407

REACTIONS (2)
  - Abortion [Unknown]
  - Exposure via partner [Unknown]
